FAERS Safety Report 6497018-4 (Version None)
Quarter: 2009Q4

REPORT INFORMATION
  Report Type: 
  Country: None (occurrence: None)
  Receive Date: 20091215
  Receipt Date: 20090105
  Transmission Date: 20100525
  Serious: No
  Sender: FDA-Public Use
  Company Number: A0762333A

PATIENT
  Age: 93 Year
  Sex: Male

DRUGS (7)
  1. AVODART [Suspect]
     Route: 048
  2. SINEMET [Concomitant]
  3. LISINOPRIL [Concomitant]
  4. UNKNOWN MEDICATION [Concomitant]
  5. LODOPIN [Concomitant]
  6. VITAMIN B-12 [Concomitant]
  7. LEXAPRO [Concomitant]

REACTIONS (1)
  - FEELING ABNORMAL [None]
